FAERS Safety Report 15328773 (Version 1)
Quarter: 2018Q3

REPORT INFORMATION
  Report Type: Report from Study
  Country: FR (occurrence: FR)
  Receive Date: 20180829
  Receipt Date: 20180829
  Transmission Date: 20181010
  Serious: Yes (Other)
  Sender: FDA-Public Use
  Company Number: FR-ASTRAZENECA-2018SE55994

PATIENT
  Age: 23382 Day
  Sex: Female
  Weight: 58 kg

DRUGS (3)
  1. DURVALUMAB. [Suspect]
     Active Substance: DURVALUMAB
     Indication: NON-SMALL CELL LUNG CANCER STAGE III
     Route: 042
     Dates: start: 20180418
  2. DURVALUMAB. [Suspect]
     Active Substance: DURVALUMAB
     Indication: NON-SMALL CELL LUNG CANCER STAGE III
     Dosage: 600 MG
     Route: 042
     Dates: start: 20180116
  3. DURVALUMAB. [Suspect]
     Active Substance: DURVALUMAB
     Indication: NON-SMALL CELL LUNG CANCER STAGE III
     Dosage: 580 MG
     Route: 042
     Dates: start: 20180523

REACTIONS (2)
  - Arthralgia [Recovering/Resolving]
  - Platelet disorder [Recovered/Resolved]

NARRATIVE: CASE EVENT DATE: 20180417
